FAERS Safety Report 8621365-0 (Version None)
Quarter: 2012Q3

REPORT INFORMATION
  Report Type: 
  Country: None (occurrence: None)
  Receive Date: 20120824
  Receipt Date: 20120815
  Transmission Date: 20120928
  Serious: Yes (Other)
  Sender: FDA-Public Use
  Company Number: US-ROCHE-788937

PATIENT
  Sex: Male
  Weight: 63.56 kg

DRUGS (2)
  1. ACCUTANE [Suspect]
     Indication: ACNE
     Route: 065
     Dates: start: 19950101, end: 19960101
  2. ACCUTANE [Suspect]
     Route: 065
     Dates: start: 20041101, end: 20050101

REACTIONS (5)
  - EMOTIONAL DISTRESS [None]
  - SUICIDAL IDEATION [None]
  - COLITIS ULCERATIVE [None]
  - INFLAMMATORY BOWEL DISEASE [None]
  - DEPRESSION [None]
